FAERS Safety Report 8350884 (Version 3)
Quarter: 2012Q4

REPORT INFORMATION
  Report Type: 
  Country: DK (occurrence: DK)
  Receive Date: 20120124
  Receipt Date: 20120828
  Transmission Date: 20130627
  Serious: Yes (Disabling)
  Sender: FDA-Public Use
  Company Number: DK-BAYER-201045250GPV

PATIENT
  Age: 41 Year
  Sex: Female
  Weight: 45 kg

DRUGS (39)
  1. MAGNEVIST [Suspect]
     Dosage: 469 mg/ml, UNK
     Route: 042
     Dates: start: 20071001, end: 20071001
  2. MAGNEVIST [Suspect]
     Dosage: UNK
     Dates: start: 2007
  3. GADOVIST [Suspect]
     Indication: SCAN WITH CONTRAST
     Dosage: 1 mmol/ml
     Route: 042
     Dates: start: 20090916, end: 20090916
  4. GADOVIST [Suspect]
     Indication: ARTERIOVENOUS FISTULA OPERATION
     Dosage: UNK
     Dates: start: 20090901, end: 20090901
  5. GADOVIST [Suspect]
     Indication: SKIN WOUND
  6. OMNISCAN [Suspect]
     Indication: ANGIOGRAM
     Dosage: 0,5 mmol/ml
     Dates: start: 20060313, end: 20060313
  7. OMNISCAN [Suspect]
     Indication: FISTULA
     Dosage: UNK
     Dates: start: 20071001, end: 20071001
  8. OMNISCAN [Suspect]
     Indication: ANGIOGRAM
     Dosage: UNK
     Dates: start: 2006
  9. SELO-ZOK [Concomitant]
     Dosage: 50 milligram(s)
     Route: 048
     Dates: start: 20061101, end: 20091104
  10. MAREVAN [Concomitant]
     Indication: ANTICOAGULANT THERAPY
     Route: 048
     Dates: start: 20040121, end: 20091104
  11. FOSRENOL [Concomitant]
     Route: 048
     Dates: start: 20060817, end: 20090708
  12. RENAGEL [SEVELAMER] [Concomitant]
     Dosage: 800 milligram(s)
     Route: 048
     Dates: start: 20060817, end: 20090519
  13. ATORVASTATIN [Concomitant]
     Dates: start: 20060927
  14. TRIATEC [Concomitant]
     Dosage: 5 milligram(s)
     Route: 048
     Dates: start: 20071001, end: 20090519
  15. PLAVIX [Concomitant]
     Dosage: 75 milligram(s)
     Route: 048
     Dates: start: 20071005
  16. STILNOCT [Concomitant]
     Route: 048
     Dates: start: 20081205, end: 20090519
  17. MIMPARA [CINACALCET] [Concomitant]
     Route: 048
     Dates: start: 20090122
  18. CIPROFLOXACIN [Concomitant]
     Route: 048
     Dates: start: 20090309, end: 20090316
  19. VANCOMYCIN [Concomitant]
     Indication: INFECTION
     Route: 042
     Dates: start: 20090605, end: 20090605
  20. FOLINSYRE SAD [Concomitant]
     Route: 048
     Dates: start: 20040121
  21. VENOFER [Concomitant]
     Dosage: 20 mg/ml
     Route: 042
     Dates: start: 20040121, end: 20100402
  22. ZEMPLAR [Concomitant]
     Dosage: 5 microgram(s)/ml
     Route: 042
     Dates: start: 20080317, end: 20090330
  23. ARANESP [Concomitant]
     Indication: ANAEMIA
     Route: 042
     Dates: start: 20080429, end: 20091222
  24. VANCOMYCIN ALPHARMA [Concomitant]
     Dates: start: 20090126, end: 20090209
  25. TRANDATE [Concomitant]
     Dosage: 100 milligram(s)
     Route: 048
     Dates: start: 20040121
  26. INNOHEP [Concomitant]
     Indication: ANTICOAGULANT THERAPY
     Dosage: 1000 u, QD
     Route: 058
     Dates: start: 20041125
  27. NITROLINGUAL [Concomitant]
     Indication: ANGINA PECTORIS
     Dosage: 0.4 mg/dose, 1 pust
     Route: 060
     Dates: start: 20070209
  28. NITROLINGUAL [Concomitant]
     Indication: ANGINA PECTORIS
  29. CODEINE [Concomitant]
     Indication: PAIN
     Dosage: 25 milligram(s)
     Route: 048
     Dates: start: 20070820, end: 20090519
  30. PRIMPERAN [Concomitant]
     Indication: NAUSEA
     Dosage: 5 mg/ml
     Route: 030
     Dates: start: 20070928, end: 20091104
  31. KETOGAN NOVUM [Concomitant]
     Dosage: 5 mg/ml, TID, 0.5 mL
     Dates: start: 20070928, end: 20091112
  32. FORTAMOL [Concomitant]
     Indication: PAIN
     Route: 048
     Dates: start: 20071106
  33. EMPERAL [Concomitant]
     Route: 048
     Dates: start: 20081117, end: 20091104
  34. CIRCADIN [Concomitant]
     Route: 048
     Dates: start: 20081219, end: 20090519
  35. TRADOLAN [Concomitant]
     Indication: PAIN
     Route: 048
     Dates: start: 20090219, end: 20090519
  36. VITAMIN B-COMPLEX [Concomitant]
     Route: 030
     Dates: start: 20090116, end: 20100308
  37. NYCOPLUS C-VITAMIN [Concomitant]
     Dates: start: 20040121
  38. B-COMBIN [Concomitant]
     Dosage: 6 ml, UNK
     Dates: start: 20040121
  39. PINEX [Concomitant]
     Indication: PAIN
     Dosage: 500 milligram(s)
     Route: 048
     Dates: start: 20070820, end: 20090519

REACTIONS (23)
  - Nephrogenic systemic fibrosis [Not Recovered/Not Resolved]
  - Muscle tightness [Not Recovered/Not Resolved]
  - Skin hypertrophy [Not Recovered/Not Resolved]
  - Gait disturbance [Not Recovered/Not Resolved]
  - Skin discolouration [Not Recovered/Not Resolved]
  - Muscle contracture [Not Recovered/Not Resolved]
  - Tendon disorder [Not Recovered/Not Resolved]
  - Oedema peripheral [Not Recovered/Not Resolved]
  - Joint range of motion decreased [Not Recovered/Not Resolved]
  - Skin induration [Not Recovered/Not Resolved]
  - Joint swelling [Not Recovered/Not Resolved]
  - Oedema peripheral [Not Recovered/Not Resolved]
  - Oedema peripheral [Not Recovered/Not Resolved]
  - Spider vein [Not Recovered/Not Resolved]
  - Pain [Not Recovered/Not Resolved]
  - Musculoskeletal stiffness [Not Recovered/Not Resolved]
  - Balance disorder [Not Recovered/Not Resolved]
  - Skin tightness [Not Recovered/Not Resolved]
  - Ulcer [Not Recovered/Not Resolved]
  - Skin burning sensation [None]
  - Skin discolouration [None]
  - Oedema peripheral [Not Recovered/Not Resolved]
  - Joint stiffness [Not Recovered/Not Resolved]
